FAERS Safety Report 9246640 (Version 1)
Quarter: 2013Q2

REPORT INFORMATION
  Report Type: Spontaneous
  Country: US (occurrence: US)
  Receive Date: 20130422
  Receipt Date: 20130422
  Transmission Date: 20140414
  Serious: No
  Sender: FDA-Public Use
  Company Number: US-ABBOTT-12P-163-0992083-00

PATIENT
  Sex: Female

DRUGS (2)
  1. LUPRON DEPOT-PED [Suspect]
     Indication: PRECOCIOUS PUBERTY
     Dosage: 2 DOSES
     Route: 030
  2. LUPRON DEPOT PED [Concomitant]
     Indication: PRECOCIOUS PUBERTY
     Route: 030

REACTIONS (4)
  - Vaginal haemorrhage [Not Recovered/Not Resolved]
  - Bilateral breast buds [Not Recovered/Not Resolved]
  - Drug ineffective [Not Recovered/Not Resolved]
  - Menstrual disorder [Unknown]
